FAERS Safety Report 13413001 (Version 1)
Quarter: 2017Q2

REPORT INFORMATION
  Report Type: Spontaneous
  Country: US (occurrence: US)
  Receive Date: 20170406
  Receipt Date: 20170406
  Transmission Date: 20170830
  Serious: No
  Sender: FDA-Public Use
  Company Number: US-JNJFOC-20170312371

PATIENT
  Sex: Male

DRUGS (1)
  1. RISPERDAL CONSTA [Suspect]
     Active Substance: RISPERIDONE
     Indication: PRODUCT USED FOR UNKNOWN INDICATION
     Dosage: DRUG INITIATED 5 YEARS SINCE THE DATE OF THE REPORT
     Route: 065
     Dates: start: 2012

REACTIONS (4)
  - Eating disorder [Unknown]
  - Gingival disorder [Unknown]
  - Coordination abnormal [Unknown]
  - Abnormal behaviour [Unknown]
